FAERS Safety Report 9515488 (Version 3)
Quarter: 2013Q4

REPORT INFORMATION
  Report Type: Report from Study
  Country: US (occurrence: US)
  Receive Date: 20130911
  Receipt Date: 20131101
  Transmission Date: 20140711
  Serious: Yes (Other)
  Sender: FDA-Public Use
  Company Number: PHEH2013US018890

PATIENT
  Age: 39 Year
  Sex: Female
  Weight: 58.5 kg

DRUGS (3)
  1. GILENYA [Suspect]
     Indication: MULTIPLE SCLEROSIS
     Dosage: 0.5 MG, QD
     Route: 048
     Dates: start: 20130906
  2. GILENYA [Suspect]
     Dosage: 1 DF, QOD
     Route: 048
  3. ADDERALL [Concomitant]

REACTIONS (4)
  - Electrocardiogram QT prolonged [Unknown]
  - Heart rate decreased [Unknown]
  - Chest discomfort [Not Recovered/Not Resolved]
  - Palpitations [Not Recovered/Not Resolved]
